FAERS Safety Report 8171688-7 (Version None)
Quarter: 2012Q1

REPORT INFORMATION
  Report Type: 
  Country: None (occurrence: None)
  Receive Date: 20120104
  Receipt Date: 20111108
  Transmission Date: 20120608
  Serious: No
  Sender: FDA-Public Use
  Company Number: 2011HGS-002761

PATIENT
  Age: 45 Hour
  Sex: Female
  Weight: 65.7716 kg

DRUGS (7)
  1. METHOTREXATE [Concomitant]
  2. BENLYSTA [Suspect]
     Indication: SYSTEMIC LUPUS ERYTHEMATOSUS
     Dosage: 10 MG/KG,1 IN 28 D, INTRAVENOUS DRIP
     Route: 041
     Dates: start: 20110817
  3. WELLBUTRIN (BUPROPION HYDROCHLORIDE) (BUPROPION HYDROCHLORIDE) [Concomitant]
  4. PREDNISONE [Concomitant]
  5. CALCIUM WITH VITAMIN D (CALCIUM WITH VITAMIN D) (ERGOCALCIFEROL, CALCI [Concomitant]
  6. GINKGO (GINKGO BILOBA) (GINKGO BILOBA) [Concomitant]
  7. FOLIC ACID [Concomitant]

REACTIONS (8)
  - NAUSEA [None]
  - ARTHRALGIA [None]
  - RASH [None]
  - MYALGIA [None]
  - FATIGUE [None]
  - ASTHENIA [None]
  - HEADACHE [None]
  - DRUG INEFFECTIVE [None]
